FAERS Safety Report 7599690-4 (Version None)
Quarter: 2011Q3

REPORT INFORMATION
  Report Type: 
  Country: None (occurrence: None)
  Receive Date: 20110711
  Receipt Date: 20110628
  Transmission Date: 20111222
  Serious: Yes (Hospitalization)
  Sender: FDA-Public Use
  Company Number: US-BAYER-2011-020653

PATIENT
  Age: 66 Year
  Sex: Female

DRUGS (14)
  1. SINGULAIR [Concomitant]
     Dosage: UNK
     Dates: start: 20110125
  2. ASPIRIN [Concomitant]
     Dosage: UNK
     Dates: start: 20100802
  3. AMITRIPTYLINE HCL [Concomitant]
     Dosage: UNK
     Dates: start: 20110412
  4. ASCORBIC ACID [Concomitant]
     Dosage: UNK
     Dates: start: 20101116
  5. ACCU-CHEK COMPACT STRIP [Concomitant]
     Dosage: UNK
     Dates: start: 20100303
  6. NEXAVAR [Suspect]
     Dosage: 200 MG, QD
     Route: 048
  7. NEXAVAR [Suspect]
     Indication: HEPATIC NEOPLASM MALIGNANT
     Dosage: 400 MG, QD
     Route: 048
     Dates: start: 20100601
  8. PROCHLORPERAZINE TAB [Concomitant]
     Dosage: UNK
     Dates: start: 20110426
  9. TIMOLOL MALEATE [Concomitant]
     Dosage: UNK
     Route: 047
     Dates: start: 20110602
  10. METFORMIN HCL [Concomitant]
     Dosage: UNK
     Dates: start: 20110403
  11. CARVEDILOL [Concomitant]
     Dosage: UNK
     Dates: start: 20110322
  12. FUROSEMIDE [Concomitant]
     Dosage: UNK
     Dates: start: 20110616
  13. HYDROCODONE BITARTRATE [Concomitant]
     Dosage: UNK
     Dates: start: 20110513
  14. OMEPRAZOLE [Concomitant]
     Dosage: UNK
     Dates: start: 20110610

REACTIONS (6)
  - NAUSEA [None]
  - HEADACHE [None]
  - ASCITES [None]
  - HYPOAESTHESIA [None]
  - FATIGUE [None]
  - TREMOR [None]
